FAERS Safety Report 7832493-1 (Version None)
Quarter: 2011Q4

REPORT INFORMATION
  Report Type: 
  Country: None (occurrence: None)
  Receive Date: 20111024
  Receipt Date: 20111018
  Transmission Date: 20120403
  Serious: Yes (Hospitalization)
  Sender: FDA-Public Use
  Company Number: US-BRISTOL-MYERS SQUIBB COMPANY-16148470

PATIENT
  Age: 63 Year
  Sex: Female
  Weight: 46 kg

DRUGS (16)
  1. PSEUDOEPHEDRINE HCL [Concomitant]
     Indication: SEASONAL ALLERGY
     Dates: start: 20101125
  2. MAGNESIUM [Concomitant]
     Dates: start: 20110307
  3. DEXAMETHASONE [Concomitant]
     Indication: SWELLING
     Dates: start: 20101128
  4. FEXOFENADINE HCL [Concomitant]
     Indication: SEASONAL ALLERGY
     Dates: start: 20101125
  5. TRIAZOLAM [Concomitant]
     Dates: start: 20101201
  6. PRAVASTATIN [Concomitant]
     Indication: DYSLIPIDAEMIA
     Dates: start: 20110106
  7. MINOCYCLINE HCL [Concomitant]
     Indication: RASH
     Dates: start: 20110131
  8. CETUXIMAB [Suspect]
     Indication: NON-SMALL CELL LUNG CANCER
     Dosage: 400MG/M2 ON DAY 1 ON CYCLE 1ONLY(17JAN2011) 250MG/M2 ON D 1 8 15 VIAL(24JAN11-12MAY11)109D
     Route: 042
     Dates: start: 20110117, end: 20110512
  9. ATENOLOL [Concomitant]
     Indication: HYPERTENSION
     Dates: start: 20101125
  10. OXYCODONE HCL [Concomitant]
     Indication: PAIN
     Dates: start: 20101229
  11. PACLITAXEL [Suspect]
     Indication: NON-SMALL CELL LUNG CANCER
     Dosage: ON DAY 1
     Route: 042
     Dates: start: 20110117, end: 20110512
  12. ASPIRIN [Concomitant]
     Indication: PROPHYLAXIS
     Dates: start: 20101125
  13. CARBOPLATIN [Suspect]
     Indication: NON-SMALL CELL LUNG CANCER
     Dosage: ON DAY 1 ,AUC 6
     Route: 042
     Dates: start: 20110117, end: 20110512
  14. LANSOPRAZOLE [Concomitant]
     Indication: PROPHYLAXIS
     Dates: start: 20101209
  15. TEMISARTAN [Concomitant]
     Dates: start: 20101125
  16. POTASSIUM CHLORIDE [Concomitant]
     Indication: HYPOKALAEMIA
     Dates: start: 20101204

REACTIONS (2)
  - ASTHENIA [None]
  - FALL [None]
